FAERS Safety Report 15774469 (Version 1)
Quarter: 2018Q4

REPORT INFORMATION
  Report Type: Spontaneous
  Country: FR (occurrence: FR)
  Receive Date: 20181229
  Receipt Date: 20181229
  Transmission Date: 20190205
  Serious: Yes (Death, Hospitalization)
  Sender: FDA-Public Use
  Company Number: FR-TEVA-2018-FR-992695

PATIENT
  Age: 86 Year
  Sex: Female
  Weight: 46.6 kg

DRUGS (10)
  1. CLOZAPINE. [Suspect]
     Active Substance: CLOZAPINE
     Indication: PRODUCT ADMINISTRATION ERROR
     Dosage: 100 MG,1X
     Route: 048
     Dates: start: 20141231, end: 20141231
  2. LEPTICUR [Suspect]
     Active Substance: TROPATEPINE HYDROCHLORIDE
     Dosage: 1 DF,QD
     Route: 065
     Dates: start: 20150101, end: 20150101
  3. MAGNESIUM ALGINATE;SODIUM ALGINATE [Concomitant]
     Dosage: UNK
     Route: 065
  4. GAVISCON [Concomitant]
     Active Substance: ALUMINUM HYDROXIDE\MAGNESIUM CARBONATE
     Route: 065
  5. EXELON [Interacting]
     Active Substance: RIVASTIGMINE TARTRATE
     Dosage: 4.6 MILLIGRAM DAILY; , QD, PATCH
     Route: 062
  6. LEPTICUR [Suspect]
     Active Substance: TROPATEPINE HYDROCHLORIDE
     Indication: DYSKINESIA
     Dosage: 1 DOSAGE FORMS DAILY; ,QD
     Route: 065
     Dates: start: 20141231, end: 20141231
  7. NITRIDERM TTS [Concomitant]
     Active Substance: NITROGLYCERIN
     Dosage: 5 MILLIGRAM DAILY; QD, PATCH
     Route: 062
  8. FOLIC ACID. [Concomitant]
     Active Substance: FOLIC ACID
     Route: 065
  9. LEPONEX [Suspect]
     Active Substance: CLOZAPINE
     Indication: PRODUCT ADMINISTRATION ERROR
     Dosage: SUPPOSED DOSE 1 COMPRESSED OF 100MG
     Route: 048
     Dates: start: 20141231, end: 20141231
  10. FORADIL [Concomitant]
     Active Substance: FORMOTEROL FUMARATE
     Route: 065

REACTIONS (7)
  - Arrhythmia [Fatal]
  - Unevaluable event [Fatal]
  - Hypersensitivity [Unknown]
  - Drug interaction [Unknown]
  - Agitation [Fatal]
  - Coma [Fatal]
  - Medication error [Unknown]

NARRATIVE: CASE EVENT DATE: 20141231
